FAERS Safety Report 7420338-3 (Version None)
Quarter: 2011Q2

REPORT INFORMATION
  Report Type: 
  Country: None (occurrence: None)
  Receive Date: 20110406
  Receipt Date: 20110329
  Transmission Date: 20111010
  Serious: Yes (Hospitalization)
  Sender: FDA-Public Use
  Company Number: 2011030142

PATIENT
  Age: 30 Year
  Sex: Male

DRUGS (6)
  1. TRAZODONE (TRAZODONE) [Concomitant]
  2. CHEMOTHERAPY [Suspect]
     Indication: NEOPLASM MALIGNANT
  3. ATIVAN [Concomitant]
  4. NEURONTIN [Concomitant]
  5. DILAUDID [Concomitant]
  6. ONSOLIS [Suspect]
     Indication: CANCER PAIN
     Dosage: MAXIMUM OF 4 FILMS/DAY (200 MCG, USE 1 FILE EVERY 4 HOURS PRN), BU
     Route: 002
     Dates: start: 20110201

REACTIONS (2)
  - OEDEMA PERIPHERAL [None]
  - NEUTROPENIA [None]
